FAERS Safety Report 8001310-1 (Version None)
Quarter: 2011Q4

REPORT INFORMATION
  Report Type: 
  Country: None (occurrence: None)
  Receive Date: 20111222
  Receipt Date: 20111219
  Transmission Date: 20120403
  Serious: Yes (Other)
  Sender: FDA-Public Use
  Company Number: GB-PFIZER INC-2011308667

PATIENT
  Age: 43 Year
  Sex: Female

DRUGS (2)
  1. METRONIDAZOLE [Suspect]
     Indication: VULVOVAGINITIS TRICHOMONAL
     Dosage: 400 MG, 2X/DAY
     Route: 048
     Dates: start: 20111102, end: 20111104
  2. DICLOFENAC [Concomitant]
     Dosage: 50 MG, 3X/DAY
     Route: 048

REACTIONS (2)
  - DERMATITIS ALLERGIC [None]
  - SYNCOPE [None]
